FAERS Safety Report 13225724 (Version 2)
Quarter: 2017Q1

REPORT INFORMATION
  Report Type: Spontaneous
  Country: JP (occurrence: JP)
  Receive Date: 20170213
  Receipt Date: 20170216
  Transmission Date: 20170428
  Serious: Yes (Life-Threatening, Hospitalization)
  Sender: FDA-Public Use
  Company Number: JP-VIFOR (INTERNATIONAL) INC.-VIT-2017-01103

PATIENT
  Age: 89 Year
  Sex: Female

DRUGS (10)
  1. MAINTATE [Concomitant]
     Active Substance: BISOPROLOL FUMARATE
     Indication: DYSLIPIDAEMIA
     Route: 048
     Dates: start: 20120604
  2. PLETAAL [Suspect]
     Active Substance: CILOSTAZOL
     Indication: SUPRAVENTRICULAR TACHYCARDIA
  3. PLETAAL [Suspect]
     Active Substance: CILOSTAZOL
     Indication: OSTEOPOROSIS
  4. PLETAAL [Suspect]
     Active Substance: CILOSTAZOL
     Indication: NEPHROGENIC ANAEMIA
  5. PLETAAL [Suspect]
     Active Substance: CILOSTAZOL
     Indication: PERIPHERAL ARTERIAL OCCLUSIVE DISEASE
  6. RYTHMODAN RETARD [Concomitant]
     Indication: DYSLIPIDAEMIA
     Route: 048
     Dates: start: 20100705
  7. MIRCERA [Suspect]
     Active Substance: METHOXY POLYETHYLENE GLYCOL-EPOETIN BETA
     Indication: NEPHROGENIC ANAEMIA
     Route: 058
     Dates: start: 20161006, end: 20161215
  8. PLETAAL [Suspect]
     Active Substance: CILOSTAZOL
     Indication: DYSLIPIDAEMIA
     Route: 048
     Dates: start: 20100705
  9. LIPITOR [Concomitant]
     Active Substance: ATORVASTATIN CALCIUM
     Indication: DYSLIPIDAEMIA
     Route: 048
     Dates: start: 20100705
  10. BONVIVA [Concomitant]
     Active Substance: IBANDRONATE SODIUM
     Indication: OSTEOPOROSIS
     Route: 042
     Dates: start: 20151001

REACTIONS (4)
  - Hemiplegia [Unknown]
  - Cerebral haemorrhage [Not Recovered/Not Resolved]
  - Loss of consciousness [Not Recovered/Not Resolved]
  - Vomiting [Unknown]

NARRATIVE: CASE EVENT DATE: 20161216
